FAERS Safety Report 9889017 (Version 1)
Quarter: 2014Q1

REPORT INFORMATION
  Report Type: Spontaneous
  Country: US (occurrence: US)
  Receive Date: 20140211
  Receipt Date: 20140211
  Transmission Date: 20141002
  Serious: Yes (Other)
  Sender: FDA-Public Use
  Company Number: US-BAYER-2014-019740

PATIENT
  Age: 38 Year
  Sex: Female
  Weight: 63.49 kg

DRUGS (5)
  1. YASMIN [Suspect]
     Indication: CONTRACEPTION
  2. VESICARE [Concomitant]
     Dosage: UNK
     Dates: start: 20060501
  3. PREVACID [Concomitant]
     Dosage: UNK
     Dates: start: 20060501
  4. TRAMADOL [Concomitant]
     Dosage: UNK
     Dates: start: 20060501
  5. LIBRAX [Concomitant]
     Dosage: UNK
     Dates: start: 20060501

REACTIONS (1)
  - Portal vein thrombosis [Recovered/Resolved]
